FAERS Safety Report 20015803 (Version 1)
Quarter: 2021Q4

REPORT INFORMATION
  Report Type: Spontaneous
  Country: US (occurrence: None)
  Receive Date: 20211101
  Receipt Date: 20211101
  Transmission Date: 20220303
  Serious: Yes (Life-Threatening, Other)
  Sender: FDA-Public Use
  Company Number: None

PATIENT
  Age: 51 Year
  Sex: Female
  Weight: 63.5 kg

DRUGS (1)
  1. SERTRALINE [Suspect]
     Active Substance: SERTRALINE HYDROCHLORIDE
     Indication: Post-traumatic stress disorder
     Dosage: OTHER QUANTITY : 1 TABLET;?FREQUENCY : DAILY;?
     Route: 048
     Dates: start: 20210720, end: 20210730

REACTIONS (5)
  - Dyspnoea [None]
  - Joint contracture [None]
  - Hypokinesia [None]
  - Chest pain [None]
  - Impaired driving ability [None]

NARRATIVE: CASE EVENT DATE: 20210730
